FAERS Safety Report 14957004 (Version 1)
Quarter: 2018Q2

REPORT INFORMATION
  Report Type: Spontaneous
  Country: US (occurrence: US)
  Receive Date: 20180531
  Receipt Date: 20180531
  Transmission Date: 20180711
  Serious: No
  Sender: FDA-Public Use
  Company Number: US-PFIZER INC-2018221228

PATIENT
  Sex: Female

DRUGS (3)
  1. ZOSYN [Suspect]
     Active Substance: PIPERACILLIN SODIUM\TAZOBACTAM SODIUM
     Indication: BLISTER INFECTED
     Dosage: UNK
     Dates: start: 20180525, end: 20180526
  2. CEFAZOLIN [Interacting]
     Active Substance: CEFAZOLIN
     Indication: BLISTER INFECTED
     Dosage: UNK
     Dates: start: 20180525, end: 20180526
  3. VANCOMYCIN HCL [Interacting]
     Active Substance: VANCOMYCIN HYDROCHLORIDE
     Indication: BLISTER INFECTED
     Dosage: UNK
     Dates: start: 20180525, end: 20180526

REACTIONS (2)
  - Urticaria [Unknown]
  - Drug interaction [Unknown]

NARRATIVE: CASE EVENT DATE: 20180526
